FAERS Safety Report 19015852 (Version 4)
Quarter: 2021Q2

REPORT INFORMATION
  Report Type: Spontaneous
  Country: PL (occurrence: PL)
  Receive Date: 20210316
  Receipt Date: 20210422
  Transmission Date: 20210717
  Serious: Yes (Disabling, Other)
  Sender: FDA-Public Use
  Company Number: NVSC2021PL044383

PATIENT
  Age: 68 Year
  Sex: Female

DRUGS (14)
  1. DOCETAXEL. [Suspect]
     Active Substance: DOCETAXEL
     Indication: CHEMOTHERAPY
  2. DEXAMETHASONE. [Suspect]
     Active Substance: DEXAMETHASONE
     Indication: PRODUCT USED FOR UNKNOWN INDICATION
     Dosage: UNK
     Route: 065
  3. CISPLATIN. [Suspect]
     Active Substance: CISPLATIN
     Indication: LUNG ADENOCARCINOMA
  4. VITAMIN B12 [Suspect]
     Active Substance: CYANOCOBALAMIN
     Indication: PRODUCT USED FOR UNKNOWN INDICATION
     Dosage: UNK
     Route: 065
  5. FOLIC ACID. [Suspect]
     Active Substance: FOLIC ACID
     Indication: PRODUCT USED FOR UNKNOWN INDICATION
     Dosage: UNK
     Route: 065
  6. DOCETAXEL. [Suspect]
     Active Substance: DOCETAXEL
     Indication: LUNG ADENOCARCINOMA
  7. PEMETREXED. [Suspect]
     Active Substance: PEMETREXED
     Indication: LUNG ADENOCARCINOMA
  8. NINTEDANIB [Suspect]
     Active Substance: NINTEDANIB
     Indication: DISEASE PROGRESSION
  9. DOCETAXEL. [Suspect]
     Active Substance: DOCETAXEL
     Indication: LUNG ADENOCARCINOMA STAGE IV
     Dosage: 4 CYCLES
     Route: 042
     Dates: start: 20181220, end: 20191017
  10. NINTEDANIB [Suspect]
     Active Substance: NINTEDANIB
     Indication: LUNG ADENOCARCINOMA STAGE IV
     Dosage: UNK
     Route: 065
     Dates: start: 20181221, end: 20191017
  11. NINTEDANIB [Suspect]
     Active Substance: NINTEDANIB
     Indication: LUNG ADENOCARCINOMA
  12. DOCETAXEL. [Suspect]
     Active Substance: DOCETAXEL
     Indication: DISEASE PROGRESSION
  13. PEMETREXED. [Suspect]
     Active Substance: PEMETREXED
     Indication: LUNG ADENOCARCINOMA STAGE IV
     Dosage: 3 CYCLES
     Route: 065
     Dates: start: 20180828, end: 20181016
  14. CISPLATIN. [Suspect]
     Active Substance: CISPLATIN
     Indication: LUNG ADENOCARCINOMA STAGE IV
     Dosage: 3 CYCLES
     Route: 065
     Dates: start: 20180828, end: 20181016

REACTIONS (6)
  - Drug ineffective [Unknown]
  - Blood creatinine increased [Unknown]
  - Transaminases increased [Unknown]
  - Disease progression [Unknown]
  - Paraesthesia [Recovering/Resolving]
  - Neutropenia [Unknown]
